FAERS Safety Report 7691782-4 (Version None)
Quarter: 2011Q3

REPORT INFORMATION
  Report Type: 
  Country: None (occurrence: None)
  Receive Date: 20110818
  Receipt Date: 20110804
  Transmission Date: 20111222
  Serious: Yes (Other)
  Sender: FDA-Public Use
  Company Number: GB-WATSON-2011-12291

PATIENT
  Age: 71 Year
  Sex: Female

DRUGS (4)
  1. AMLODIPINE [Concomitant]
     Indication: HYPERTENSION
     Dosage: 5 MG, UNKNOWN
     Route: 048
     Dates: start: 20110303
  2. ORLISTAT [Concomitant]
     Indication: WEIGHT DECREASED
     Dosage: 120 MG, UNKNOWN
     Route: 048
     Dates: start: 20110107
  3. RAMIPRIL [Suspect]
     Indication: HYPERTENSION
     Dosage: 2.5 MG, UNKNOWN
     Route: 048
     Dates: start: 20110413, end: 20110420
  4. LEVOTHYROXINE SODIUM [Concomitant]
     Indication: HYPOTHYROIDISM
     Dosage: 150 UG, UNKNOWN
     Route: 048
     Dates: start: 20000126

REACTIONS (3)
  - LIP SWELLING [None]
  - EYE SWELLING [None]
  - OROPHARYNGEAL BLISTERING [None]
